FAERS Safety Report 24158016 (Version 1)
Quarter: 2024Q3

REPORT INFORMATION
  Report Type: Spontaneous
  Country: US (occurrence: None)
  Receive Date: 20240731
  Receipt Date: 20240731
  Transmission Date: 20241016
  Serious: Yes (Hospitalization)
  Sender: Public
  Company Number: None

PATIENT
  Sex: Male

DRUGS (7)
  1. NOVOSEVEN RT [Suspect]
     Active Substance: COAGULATION FACTOR VIIA RECOMBINANT HUMAN
     Indication: Factor VIII deficiency
     Dosage: 5MG PRN IV
     Route: 042
     Dates: start: 202407
  2. NOVOSEVEN RT [Suspect]
     Active Substance: COAGULATION FACTOR VIIA RECOMBINANT HUMAN
     Indication: Factor VIII deficiency
     Dosage: 2MG PRN IV
     Route: 042
     Dates: start: 202407
  3. BLUNT FILTER NEEDLE [Concomitant]
  4. BUTTERFLY NEEDLE [Concomitant]
  5. SOD CHOR POSIFLUSH [Concomitant]
  6. HEPARIN L/L FLUSH [Concomitant]
  7. HEMLIBRA [Concomitant]
     Active Substance: EMICIZUMAB-KXWH

REACTIONS (1)
  - Joint microhaemorrhage [None]

NARRATIVE: CASE EVENT DATE: 20240712
